FAERS Safety Report 13506729 (Version 1)
Quarter: 2017Q2

REPORT INFORMATION
  Report Type: Spontaneous
  Country: US (occurrence: US)
  Receive Date: 20170502
  Receipt Date: 20170502
  Transmission Date: 20170830
  Serious: No
  Sender: FDA-Public Use
  Company Number: US-ROCHE-1253475

PATIENT
  Age: 43 Year
  Sex: Female

DRUGS (3)
  1. LUCENTIS [Suspect]
     Active Substance: RANIBIZUMAB
     Indication: PRODUCT USED FOR UNKNOWN INDICATION
     Dosage: DISCONTINUED AROUND JANUARY OF FEBRUARY
     Route: 065
  2. AVASTIN [Suspect]
     Active Substance: BEVACIZUMAB
     Indication: OFF LABEL USE
  3. AVASTIN [Suspect]
     Active Substance: BEVACIZUMAB
     Indication: RETINAL VEIN OCCLUSION
     Dosage: (4 TO 5 TIMES IN LEFT EYE) .THERAPY DISCONTINUED AROUND JANUARY OF FEBRUARY.
     Route: 050
     Dates: start: 20120712, end: 20120809

REACTIONS (11)
  - Anaemia [Unknown]
  - Red blood cell count decreased [Unknown]
  - Arthralgia [Recovered/Resolved]
  - Dysphonia [Recovered/Resolved]
  - Facial pain [Recovered/Resolved]
  - Drug ineffective [Unknown]
  - Rash [Recovered/Resolved]
  - Fatigue [Unknown]
  - Vitamin B12 decreased [Unknown]
  - Gluten sensitivity [Unknown]
  - Rash [Recovering/Resolving]

NARRATIVE: CASE EVENT DATE: 20120812
